FAERS Safety Report 4869839-2 (Version None)
Quarter: 2005Q4

REPORT INFORMATION
  Report Type: 
  Country: None (occurrence: None)
  Receive Date: 20051230
  Receipt Date: 20051005
  Transmission Date: 20060501
  Serious: Yes (Hospitalization, Other)
  Sender: FDA-Public Use
  Company Number: US-MERCK-0510USA04048

PATIENT
  Age: 56 Year
  Sex: Male
  Weight: 68 kg

DRUGS (4)
  1. VIOXX [Suspect]
     Indication: ARTHRITIS
     Route: 048
     Dates: start: 20010801, end: 20030101
  2. LOPRESSOR [Concomitant]
     Route: 065
  3. DIOVAN [Concomitant]
     Route: 065
  4. VALSARTAN [Concomitant]
     Route: 065

REACTIONS (8)
  - ACUTE MYOCARDIAL INFARCTION [None]
  - ADVERSE EVENT [None]
  - CARDIOVASCULAR DISORDER [None]
  - CORONARY ARTERY DISEASE [None]
  - LABILE HYPERTENSION [None]
  - MYOCARDIAL ISCHAEMIA [None]
  - RENAL FAILURE [None]
  - VENTRICULAR HYPERTROPHY [None]
